FAERS Safety Report 10168747 (Version 1)
Quarter: 2014Q2

REPORT INFORMATION
  Report Type: Spontaneous
  Country: UA (occurrence: None)
  Receive Date: 20140509
  Receipt Date: 20140509
  Transmission Date: 20141212
  Serious: Yes (Other)
  Sender: FDA-Public Use
  Company Number: VAL_03110_2014

PATIENT
  Age: 18 Year
  Sex: Male

DRUGS (2)
  1. METOPROLOL (METOPROLOL) [Suspect]
     Indication: AUTONOMIC NEUROPATHY
  2. BACLOFEN (BACLOFEN) [Suspect]
     Indication: AUTONOMIC NEUROPATHY

REACTIONS (5)
  - Heart rate increased [None]
  - Hyperhidrosis [None]
  - Psychomotor hyperactivity [None]
  - No therapeutic response [None]
  - Hyperthermia [None]
